FAERS Safety Report 4282674-1 (Version None)
Quarter: 2004Q1

REPORT INFORMATION
  Report Type: 
  Country: None (occurrence: None)
  Receive Date: 20040130
  Receipt Date: 20030204
  Transmission Date: 20041129
  Serious: Yes (Other)
  Sender: FDA-Public Use
  Company Number: US-BRISTOL-MYERS SQUIBB COMPANY-12175394

PATIENT
  Age: 47 Year
  Sex: Female

DRUGS (1)
  1. SERZONE [Suspect]
     Indication: ANXIETY
     Route: 048
     Dates: end: 20030206

REACTIONS (4)
  - ALANINE AMINOTRANSFERASE INCREASED [None]
  - ARTHRALGIA [None]
  - ASPARTATE AMINOTRANSFERASE INCREASED [None]
  - MUSCULOSKELETAL DISCOMFORT [None]
